FAERS Safety Report 9249779 (Version 1)
Quarter: 2013Q2

REPORT INFORMATION
  Report Type: Spontaneous
  Country: US (occurrence: US)
  Receive Date: 20130423
  Receipt Date: 20130423
  Transmission Date: 20140414
  Serious: Yes (Life-Threatening, Disabling, Other)
  Sender: FDA-Public Use
  Company Number: CHPA2013US006848

PATIENT
  Age: 27 Year
  Sex: Female

DRUGS (3)
  1. EXCEDRIN UNKNOWN [Suspect]
     Indication: HEADACHE
     Dosage: 2 DF, ONCE/SINGLE
     Route: 048
     Dates: start: 20111213, end: 20111213
  2. EXCEDRIN UNKNOWN [Suspect]
     Dosage: UNK, A FEW DAYS THAT WEEK
     Route: 048
  3. EXCEDRIN UNKNOWN [Suspect]
     Route: 048

REACTIONS (5)
  - Haemorrhagic stroke [Unknown]
  - Aphasia [Recovered/Resolved]
  - Hemiplegia [Recovering/Resolving]
  - Movement disorder [Recovering/Resolving]
  - Therapeutic response unexpected [Recovered/Resolved with Sequelae]
